FAERS Safety Report 7392907-0 (Version None)
Quarter: 2011Q2

REPORT INFORMATION
  Report Type: 
  Country: None (occurrence: None)
  Receive Date: 20110404
  Receipt Date: 20110330
  Transmission Date: 20111010
  Serious: Yes (Hospitalization, Other)
  Sender: FDA-Public Use
  Company Number: CA-ABBOTT-11P-028-0707263-00

PATIENT
  Age: 30 Year
  Sex: Female
  Weight: 80 kg

DRUGS (2)
  1. LUPRON DEPOT [Suspect]
     Indication: ENDOMETRIOSIS
     Route: 051
  2. SEROQUEL [Concomitant]
     Indication: PRODUCT USED FOR UNKNOWN INDICATION
     Dosage: AT NIGHT

REACTIONS (9)
  - BLOOD PRESSURE INCREASED [None]
  - OXYGEN SATURATION DECREASED [None]
  - URTICARIA [None]
  - HYPERSENSITIVITY [None]
  - PYREXIA [None]
  - VOMITING [None]
  - HOT FLUSH [None]
  - HEART RATE INCREASED [None]
  - MALAISE [None]
